FAERS Safety Report 8332127-6 (Version None)
Quarter: 2012Q2

REPORT INFORMATION
  Report Type: 
  Country: None (occurrence: None)
  Receive Date: 20120502
  Receipt Date: 20120419
  Transmission Date: 20120825
  Serious: Yes (Hospitalization, Other)
  Sender: FDA-Public Use
  Company Number: US-MYLANLABS-2009AC000524

PATIENT
  Sex: Female
  Weight: 56.7 kg

DRUGS (19)
  1. PLAVIX [Concomitant]
  2. DARVOCET-N 100 [Concomitant]
     Indication: PAIN
     Dosage: PRN
  3. KEFLEX [Concomitant]
     Dosage: X 7 DAYS
  4. BISOPROLOL FUMARATE [Concomitant]
  5. ZETIA [Concomitant]
  6. DIPHENHYDRAMINE HCL [Concomitant]
     Indication: INSOMNIA
     Dosage: PRN
  7. ISOSORBIDE DINITRATE [Concomitant]
  8. LOVASTATIN [Concomitant]
  9. ZITHROMAX [Concomitant]
  10. ASPIRIN [Concomitant]
  11. LISINOPRIL [Concomitant]
  12. IBUPROFEN [Concomitant]
  13. LOPRESSOR [Concomitant]
  14. DIGOXIN [Suspect]
     Indication: MYOCARDIAL INFARCTION
     Route: 048
     Dates: start: 19990101, end: 20080401
  15. LASIX [Concomitant]
  16. WELLBUTRIN [Concomitant]
  17. MAGNESIUM OXIDE [Concomitant]
  18. COLCHICINE [Concomitant]
  19. CALCIUM [Concomitant]

REACTIONS (30)
  - HYPERCHOLESTEROLAEMIA [None]
  - PERIPHERAL ISCHAEMIA [None]
  - JOINT ARTHROPLASTY [None]
  - PAIN [None]
  - HYPOTENSION [None]
  - HYPOAESTHESIA [None]
  - BRADYCARDIA [None]
  - LEFT VENTRICULAR DYSFUNCTION [None]
  - SICK SINUS SYNDROME [None]
  - CELLULITIS [None]
  - DIZZINESS [None]
  - CORONARY ARTERY BYPASS [None]
  - ECONOMIC PROBLEM [None]
  - CARDIAC FAILURE CONGESTIVE [None]
  - ARTERIOSCLEROSIS [None]
  - OSTEOMYELITIS [None]
  - ASTHENIA [None]
  - BUNION [None]
  - HYPOVOLAEMIA [None]
  - IMPLANTABLE DEFIBRILLATOR INSERTION [None]
  - CARDIAC MONITORING [None]
  - PRESYNCOPE [None]
  - ISCHAEMIC CARDIOMYOPATHY [None]
  - EJECTION FRACTION DECREASED [None]
  - GOUT [None]
  - EMOTIONAL DISTRESS [None]
  - PAIN IN EXTREMITY [None]
  - PYREXIA [None]
  - ILL-DEFINED DISORDER [None]
  - CARDIAC PACEMAKER INSERTION [None]
